FAERS Safety Report 26144442 (Version 1)
Quarter: 2025Q4

REPORT INFORMATION
  Report Type: Other
  Country: GB (occurrence: GB)
  Receive Date: 20251211
  Receipt Date: 20251211
  Transmission Date: 20260118
  Serious: Yes (Other)
  Sender: GLENMARK
  Company Number: None

PATIENT
  Age: 58 Year
  Weight: 48 kg

DRUGS (2)
  1. ROPINIROLE HYDROCHLORIDE [Suspect]
     Active Substance: ROPINIROLE HYDROCHLORIDE
     Indication: Restless legs syndrome
     Dosage: 4 MILLIGRAM
     Route: 065
  2. ROPINIROLE HYDROCHLORIDE [Suspect]
     Active Substance: ROPINIROLE HYDROCHLORIDE
     Dosage: 2.5 MILLIGRAM (STARTED AT 4MG THEN WITHDREW IN 2.5 OVER 5 MONTHS)
     Route: 065
     Dates: end: 20251129

REACTIONS (5)
  - Condition aggravated [Recovering/Resolving]
  - Restless leg augmentation syndrome [Unknown]
  - Medication error [Unknown]
  - Sleep deficit [Unknown]
  - Impaired quality of life [Unknown]
